FAERS Safety Report 8906672 (Version 1)
Quarter: 2012Q4

REPORT INFORMATION
  Report Type: 
  Country: US (occurrence: US)
  Receive Date: 20121113
  Receipt Date: 20121113
  Transmission Date: 20130627
  Serious: No
  Sender: FDA-Public Use
  Company Number: US-AMGEN-USASP2012011121

PATIENT
  Age: 63 Year
  Sex: Female

DRUGS (10)
  1. ENBREL [Suspect]
     Indication: PRODUCT USED FOR UNKNOWN INDICATION
     Dosage: 50 mg, qwk
     Route: 058
  2. METHOTREXATE [Concomitant]
     Dosage: 2.5 mg, UNK
     Route: 048
  3. LIPITOR [Concomitant]
     Dosage: 20 mg, UNK
     Route: 048
  4. K-DUR [Concomitant]
     Dosage: 20 mEq, UNK
     Route: 048
  5. AVAPRO [Concomitant]
     Dosage: 150 mg, UNK
     Route: 048
  6. FOLIC ACID [Concomitant]
     Dosage: 1 mg, UNK
     Route: 048
  7. NEXIUM                             /01479302/ [Concomitant]
     Dosage: 20 mg, UNK
     Route: 048
  8. ZANAFLEX [Concomitant]
     Dosage: 2 mg, UNK
     Route: 048
  9. CARTIA XT [Concomitant]
     Dosage: UNK
     Route: 048
  10. HYDROCHLOROTHIAZIDE\TRIAMTERENE [Suspect]
     Dosage: UNK
     Route: 048

REACTIONS (1)
  - Alopecia [Unknown]
